FAERS Safety Report 6644983-8 (Version None)
Quarter: 2010Q1

REPORT INFORMATION
  Report Type: 
  Country: None (occurrence: None)
  Receive Date: 20100322
  Receipt Date: 20100311
  Transmission Date: 20100710
  Serious: Yes (Other)
  Sender: FDA-Public Use
  Company Number: PHHY2009ES53513

PATIENT
  Age: 48 Year
  Sex: Male

DRUGS (1)
  1. DIOVAN [Suspect]
     Indication: HYPERTENSION
     Dosage: 160 MG
     Route: 065
     Dates: start: 20090525, end: 20090923

REACTIONS (3)
  - BLOOD CREATININE INCREASED [None]
  - HEADACHE [None]
  - RENAL IMPAIRMENT [None]
